FAERS Safety Report 15587162 (Version 5)
Quarter: 2019Q2

REPORT INFORMATION
  Report Type: Spontaneous
  Country: BR (occurrence: BR)
  Receive Date: 20181105
  Receipt Date: 20190513
  Transmission Date: 20190711
  Serious: Yes (Life-Threatening, Hospitalization, Other)
  Sender: FDA-Public Use
  Company Number: BR-PFIZER INC-2018248791

PATIENT
  Age: 39 Year
  Sex: Male

DRUGS (2)
  1. SUTENT [Suspect]
     Active Substance: SUNITINIB MALATE
     Dosage: 50 MG, CYCLIC (2X1) / USES 2 WEEKS AND REST 1 WEEK
     Dates: start: 2018
  2. SUTENT [Suspect]
     Active Substance: SUNITINIB MALATE
     Indication: RENAL CANCER METASTATIC
     Dosage: 50 MG, CYCLIC (4X2)
     Dates: start: 2018

REACTIONS (16)
  - Gastrointestinal disorder [Not Recovered/Not Resolved]
  - Coma [Unknown]
  - Decreased immune responsiveness [Unknown]
  - Pain in extremity [Unknown]
  - Blood triglycerides increased [Recovering/Resolving]
  - Abdominal discomfort [Unknown]
  - Wound [Unknown]
  - Feeling abnormal [Unknown]
  - Blood glucose abnormal [Unknown]
  - Dysphagia [Unknown]
  - Blood pressure increased [Recovering/Resolving]
  - Vomiting [Unknown]
  - Eating disorder [Unknown]
  - Cholelithiasis [Unknown]
  - Blood cholesterol increased [Recovering/Resolving]
  - Abdominal pain [Unknown]

NARRATIVE: CASE EVENT DATE: 2018
